FAERS Safety Report 12552567 (Version 2)
Quarter: 2016Q4

REPORT INFORMATION
  Report Type: Report from Study
  Country: BR (occurrence: BR)
  Receive Date: 20160713
  Receipt Date: 20161010
  Transmission Date: 20170207
  Serious: Yes (Other)
  Sender: FDA-Public Use
  Company Number: PHHY2016BR095562

PATIENT
  Sex: Male
  Weight: 112 kg

DRUGS (1)
  1. SANDOSTATIN LAR DEPOT [Suspect]
     Active Substance: OCTREOTIDE ACETATE
     Indication: ACROMEGALY
     Dosage: 30 MG, QMO (ONCE A MONTH)
     Route: 030
     Dates: start: 2013

REACTIONS (7)
  - Disease progression [Unknown]
  - Weight decreased [Unknown]
  - Visual impairment [Unknown]
  - Tear discolouration [Unknown]
  - Blood growth hormone increased [Unknown]
  - Blindness unilateral [Unknown]
  - Ocular hyperaemia [Unknown]
